FAERS Safety Report 25594597 (Version 1)
Quarter: 2025Q3

REPORT INFORMATION
  Report Type: Report from Study
  Country: US (occurrence: US)
  Receive Date: 20250723
  Receipt Date: 20250723
  Transmission Date: 20251020
  Serious: Yes (Hospitalization, Other)
  Sender: Pyros Pharmaceuticals
  Company Number: US-PYROS PHARMACEUTICALS, INC-20250701006

PATIENT
  Age: 1 Year

DRUGS (1)
  1. VIGAFYDE [Suspect]
     Active Substance: VIGABATRIN
     Indication: Infantile spasms
     Dates: start: 20250417

REACTIONS (2)
  - Respiratory disorder [Not Recovered/Not Resolved]
  - Central nervous system bacterial infection [Not Recovered/Not Resolved]

NARRATIVE: CASE EVENT DATE: 20250701
